FAERS Safety Report 7896628 (Version 3)
Quarter: 2013Q2

REPORT INFORMATION
  Report Type: Spontaneous
  Country: US (occurrence: US)
  Receive Date: 20110413
  Receipt Date: 20130415
  Transmission Date: 20140414
  Serious: Yes (Hospitalization)
  Sender: FDA-Public Use
  Company Number: US-US-EMD SERONO, INC.-7051397

PATIENT
  Age: 26 Year
  Sex: Male

DRUGS (4)
  1. REBIF [Suspect]
     Indication: NEUROMYELITIS OPTICA
     Route: 058
     Dates: start: 20110317
  2. REBIF [Suspect]
     Route: 058
     Dates: end: 201209
  3. TRAMADOL [Concomitant]
     Indication: PREMEDICATION
  4. TYLENOL [Concomitant]
     Indication: PREMEDICATION

REACTIONS (3)
  - Neuromyelitis optica [Recovering/Resolving]
  - Balance disorder [Unknown]
  - Back pain [Unknown]
